FAERS Safety Report 7220139-5 (Version None)
Quarter: 2011Q1

REPORT INFORMATION
  Report Type: 
  Country: None (occurrence: None)
  Receive Date: 20110111
  Receipt Date: 20110107
  Transmission Date: 20110831
  Serious: Yes (Life-Threatening, Hospitalization)
  Sender: FDA-Public Use
  Company Number: FR-BRISTOL-MYERS SQUIBB COMPANY-15440639

PATIENT
  Age: 36 Year
  Sex: Female
  Weight: 70 kg

DRUGS (8)
  1. ABILIFY [Suspect]
     Indication: ASTHENIA
     Dosage: INITIAL DOSE:10MG/D DOSE INCREASED TO 15MG/D AFTER 15 DAYS
     Route: 048
     Dates: start: 20101127, end: 20101211
  2. TOPIRAMATE [Concomitant]
     Indication: EPILEPSY
  3. KEPPRA [Concomitant]
     Indication: EPILEPSY
     Route: 048
     Dates: start: 20050101
  4. TEGRETOL [Concomitant]
     Indication: EPILEPSY
     Dosage: TEGRETOL SR
     Route: 048
     Dates: start: 20050101
  5. PRAZEPAM [Concomitant]
     Indication: AUTISM SPECTRUM DISORDER
     Route: 048
     Dates: start: 20050101
  6. ABILIFY [Suspect]
     Indication: MENTAL RETARDATION
     Dosage: INITIAL DOSE:10MG/D DOSE INCREASED TO 15MG/D AFTER 15 DAYS
     Route: 048
     Dates: start: 20101127, end: 20101211
  7. LEVOTHYROX [Concomitant]
     Indication: HYPOTHYROIDISM
     Route: 048
     Dates: start: 20050101
  8. ABILIFY [Suspect]
     Indication: AUTISM SPECTRUM DISORDER
     Dosage: INITIAL DOSE:10MG/D DOSE INCREASED TO 15MG/D AFTER 15 DAYS
     Route: 048
     Dates: start: 20101127, end: 20101211

REACTIONS (2)
  - HYPOTHERMIA [None]
  - DEPRESSED LEVEL OF CONSCIOUSNESS [None]
